FAERS Safety Report 13614378 (Version 1)
Quarter: 2017Q2

REPORT INFORMATION
  Report Type: Spontaneous
  Country: US (occurrence: US)
  Receive Date: 20170606
  Receipt Date: 20170606
  Transmission Date: 20170830
  Serious: No
  Sender: FDA-Public Use
  Company Number: US-ASTRAZENECA-2017SE56846

PATIENT
  Sex: Male

DRUGS (2)
  1. PERCOCET [Concomitant]
     Active Substance: ACETAMINOPHEN\OXYCODONE HYDROCHLORIDE
     Dosage: UNKNOWN
     Route: 065
  2. MOVANTIK [Suspect]
     Active Substance: NALOXEGOL OXALATE
     Indication: CONSTIPATION
     Route: 048

REACTIONS (8)
  - Arthropathy [Not Recovered/Not Resolved]
  - Gastrointestinal motility disorder [Not Recovered/Not Resolved]
  - Abdominal pain lower [Not Recovered/Not Resolved]
  - Arthritis [Unknown]
  - Diarrhoea [Not Recovered/Not Resolved]
  - Faeces hard [Unknown]
  - Joint swelling [Not Recovered/Not Resolved]
  - Limb injury [Unknown]
